FAERS Safety Report 9277301 (Version 1)
Quarter: 2013Q2

REPORT INFORMATION
  Report Type: Spontaneous
  Country: US (occurrence: None)
  Receive Date: 20130502
  Receipt Date: 20130502
  Transmission Date: 20140414
  Serious: No
  Sender: FDA-Public Use
  Company Number: None

PATIENT
  Sex: Female
  Weight: 92.99 kg

DRUGS (1)
  1. METOPROLOL [Suspect]
     Indication: TACHYCARDIA
     Route: 048
     Dates: start: 20130312, end: 20130402

REACTIONS (1)
  - Chest pain [None]
